FAERS Safety Report 7806346-9 (Version None)
Quarter: 2011Q4

REPORT INFORMATION
  Report Type: 
  Country: None (occurrence: None)
  Receive Date: 20111011
  Receipt Date: 20110930
  Transmission Date: 20120403
  Serious: Yes (Hospitalization)
  Sender: FDA-Public Use
  Company Number: CA-JNJFOC-20111001681

PATIENT
  Sex: Female
  Weight: 51.5 kg

DRUGS (12)
  1. CELEBREX [Concomitant]
     Route: 065
  2. FOLIC ACID [Concomitant]
     Route: 065
  3. REMICADE [Suspect]
     Indication: RHEUMATOID ARTHRITIS
     Route: 042
     Dates: start: 20081201
  4. METHOTREXATE [Concomitant]
     Route: 065
  5. ATIVAN [Concomitant]
     Route: 065
  6. METOPROLOL SUCCINATE [Concomitant]
     Route: 065
  7. PERCOCET [Concomitant]
     Route: 065
  8. TYLENOL W/ CODEINE NO. 2 [Concomitant]
     Route: 065
  9. INULIN [Concomitant]
     Route: 065
  10. ZOVIRAX [Concomitant]
     Route: 065
  11. PANTOPRAZOLE [Concomitant]
     Route: 065
  12. GABAPENTIN [Concomitant]
     Route: 065

REACTIONS (2)
  - CATARACT [None]
  - INFECTION [None]
